FAERS Safety Report 8825724 (Version 2)
Quarter: 2012Q4

REPORT INFORMATION
  Report Type: 
  Country: US (occurrence: US)
  Receive Date: 20121004
  Receipt Date: 20121008
  Transmission Date: 20130627
  Serious: Yes (Life-Threatening, Hospitalization)
  Sender: FDA-Public Use
  Company Number: US-009507513-1210USA001390

PATIENT
  Age: 64 Year
  Sex: Female
  Weight: 88.18 kg

DRUGS (4)
  1. VORINOSTAT [Suspect]
     Indication: GLIOBLASTOMA MULTIFORME
     Dosage: 300 mg on days 1-5 weekly
     Route: 048
     Dates: start: 20120521
  2. VORINOSTAT [Suspect]
     Dosage: 500 mg on days 1-7 and 15-21
     Route: 048
     Dates: start: 20120903, end: 20120923
  3. TEMOZOLOMIDE [Suspect]
     Indication: GLIOBLASTOMA MULTIFORME
     Dosage: 75 mg/m2 on days 1-5
     Route: 048
     Dates: start: 20120521
  4. TEMOZOLOMIDE [Suspect]
     Dosage: 150 mg/m2 on days 1-5
     Dates: start: 20120903, end: 20120907

REACTIONS (6)
  - Muscular weakness [Recovering/Resolving]
  - Platelet count decreased [Recovering/Resolving]
  - White blood cell count decreased [Recovering/Resolving]
  - Fatigue [Recovering/Resolving]
  - Neutrophil count decreased [Recovering/Resolving]
  - Anaemia [Recovering/Resolving]
